FAERS Safety Report 12962995 (Version 1)
Quarter: 2016Q4

REPORT INFORMATION
  Report Type: Report from Study
  Country: US (occurrence: US)
  Receive Date: 20161122
  Receipt Date: 20161122
  Transmission Date: 20170207
  Serious: No
  Sender: FDA-Public Use
  Company Number: US-AMGEN-USASL2016156388

PATIENT
  Age: 91 Year
  Sex: Male

DRUGS (1)
  1. ENBREL [Suspect]
     Active Substance: ETANERCEPT
     Indication: PSORIASIS
     Dosage: UNK, QWK
     Route: 065

REACTIONS (5)
  - Mobility decreased [Unknown]
  - Abdominal discomfort [Recovering/Resolving]
  - Arthritis [Recovering/Resolving]
  - Malaise [Unknown]
  - Herpes zoster [Recovering/Resolving]
